FAERS Safety Report 5209759-7 (Version None)
Quarter: 2006Q4

REPORT INFORMATION
  Report Type: 
  Country: None (occurrence: None)
  Receive Date: 20061128
  Receipt Date: 20060223
  Transmission Date: 20070319
  Serious: Yes (Hospitalization)
  Sender: FDA-Public Use
  Company Number: 2006005709

PATIENT
  Sex: Male
  Weight: 102.0593 kg

DRUGS (3)
  1. TIKOSYN [Suspect]
     Indication: ATRIAL FIBRILLATION
     Dosage: 1 MG (500 MCG, 2 IN 1 D), ORAL
     Route: 048
     Dates: start: 20051101
  2. AMBIEN [Concomitant]
  3. ASPIRIN [Concomitant]

REACTIONS (2)
  - BLOOD MAGNESIUM DECREASED [None]
  - DRUG INEFFECTIVE [None]
